FAERS Safety Report 5939552-9 (Version None)
Quarter: 2008Q4

REPORT INFORMATION
  Report Type: 
  Country: None (occurrence: None)
  Receive Date: 20081029
  Receipt Date: 20081020
  Transmission Date: 20090506
  Serious: Yes (Other)
  Sender: FDA-Public Use
  Company Number: 100#03#2008-05359

PATIENT
  Age: 58 Year
  Sex: Female

DRUGS (6)
  1. ALENDRONIC ACID (ALENDRONIC ACID) [Suspect]
     Indication: OSTEOPOROSIS
     Dosage: 70 MG ONCE WEEKLY ORAL
     Route: 048
     Dates: end: 20080905
  2. ADCAL-D3 (CALCIUM CARBONATE, COLECALCIFEROL) [Concomitant]
  3. CAPASAL (COAL TAR, COCONUT OIL, SALICYLIC ACID, SORBIC ACID) [Concomitant]
  4. DOSULEPIN (DOSULEPIN) [Concomitant]
  5. EXEMESTANE [Concomitant]
  6. STRONTIUM RANELATE (STRONTIUM RANELATE) [Concomitant]

REACTIONS (5)
  - BLISTER [None]
  - ECZEMA [None]
  - MOUTH ULCERATION [None]
  - POOR QUALITY SLEEP [None]
  - PRURITUS [None]
